FAERS Safety Report 7042579-X (Version None)
Quarter: 2010Q4

REPORT INFORMATION
  Report Type: 
  Country: None (occurrence: None)
  Receive Date: 20101013
  Receipt Date: 20101011
  Transmission Date: 20110411
  Serious: Yes (Hospitalization)
  Sender: FDA-Public Use
  Company Number: CHPA2010IT15955

PATIENT
  Sex: Female

DRUGS (2)
  1. IBUPROFEN (NGX) [Suspect]
     Dosage: UNK, UNK
     Route: 065
  2. DRUG THERAPY NOS [Suspect]
     Dosage: UNK, UNK
     Route: 065

REACTIONS (2)
  - HEPATITIS ACUTE [None]
  - MONONUCLEOSIS SYNDROME [None]
